FAERS Safety Report 11650639 (Version 2)
Quarter: 2022Q4

REPORT INFORMATION
  Report Type: Spontaneous
  Country: US (occurrence: US)
  Receive Date: 20151021
  Receipt Date: 20221020
  Transmission Date: 20230113
  Serious: No
  Sender: FDA-Public Use
  Company Number: US-NOVOPROD-448531

PATIENT
  Sex: Male

DRUGS (2)
  1. ESTRADIOL [Suspect]
     Active Substance: ESTRADIOL
     Dosage: UNK
     Route: 065
  2. ESTRADIOL [Suspect]
     Active Substance: ESTRADIOL
     Indication: Exposure via body fluid
     Dosage: UNK
     Route: 065

REACTIONS (1)
  - Erectile dysfunction [Not Recovered/Not Resolved]
